FAERS Safety Report 7849291-5 (Version None)
Quarter: 2011Q4

REPORT INFORMATION
  Report Type: 
  Country: None (occurrence: None)
  Receive Date: 20111026
  Receipt Date: 20111020
  Transmission Date: 20120403
  Serious: Yes (Hospitalization)
  Sender: FDA-Public Use
  Company Number: CA-AMGEN-CANSP2011008095

PATIENT
  Age: 2 Year
  Sex: Male

DRUGS (1)
  1. NPLATE [Suspect]
     Indication: IDIOPATHIC THROMBOCYTOPENIC PURPURA
     Dosage: UNK UNK, QWK
     Route: 058
     Dates: start: 20110120

REACTIONS (5)
  - ABASIA [None]
  - PARALYSIS [None]
  - ASTHENIA [None]
  - HAEMORRHAGE [None]
  - MOBILITY DECREASED [None]
